FAERS Safety Report 18287707 (Version 3)
Quarter: 2020Q4

REPORT INFORMATION
  Report Type: Report from Study
  Country: ES (occurrence: ES)
  Receive Date: 20200921
  Receipt Date: 20201007
  Transmission Date: 20210113
  Serious: Yes (Hospitalization)
  Sender: FDA-Public Use
  Company Number: ES-ROCHE-2680196

PATIENT
  Age: 41 Year
  Sex: Female
  Weight: 57.1 kg

DRUGS (4)
  1. MOXIFLOXACIN. [Concomitant]
     Active Substance: MOXIFLOXACIN
     Route: 048
     Dates: start: 20200921, end: 20200928
  2. PACLITAXEL. [Suspect]
     Active Substance: PACLITAXEL
     Indication: OVARIAN CANCER
     Dosage: ON 02/SEP/2020, LAST DOSE (128 MG) OF PACLITAXEL PRIOR TO SAE.
     Route: 042
     Dates: start: 20200818, end: 20200909
  3. BLINDED ATEZOLIZUMAB [Suspect]
     Active Substance: ATEZOLIZUMAB
     Indication: OVARIAN CANCER
     Dosage: ON 02/SEP/2020, LAST DOSE OF ATEZOLIZUMAB PRIOR TO SAE?Q14
     Route: 042
     Dates: start: 20200818, end: 20200909
  4. BEVACIZUMAB. [Suspect]
     Active Substance: BEVACIZUMAB
     Indication: OVARIAN CANCER
     Dosage: ON 02/SEP/2020, LAST DOSE (572 MG) OF BEVACIZUMAB PRIOR TO SAE.
     Route: 042
     Dates: start: 20200818, end: 20200909

REACTIONS (1)
  - Pyrexia [Recovered/Resolved]

NARRATIVE: CASE EVENT DATE: 20200909
